FAERS Safety Report 24357698 (Version 2)
Quarter: 2024Q4

REPORT INFORMATION
  Report Type: Spontaneous
  Country: CA (occurrence: CA)
  Receive Date: 20240924
  Receipt Date: 20241118
  Transmission Date: 20250115
  Serious: Yes (Other)
  Sender: PFIZER
  Company Number: CA-PFIZER INC-202200808500

PATIENT
  Age: 61 Year
  Sex: Male

DRUGS (7)
  1. SOMAVERT [Suspect]
     Active Substance: PEGVISOMANT
     Indication: Acromegaly
     Dosage: DISCONTINUED
     Route: 058
     Dates: start: 20191007
  2. SOMAVERT [Suspect]
     Active Substance: PEGVISOMANT
     Dosage: 4X/WEEK
     Route: 058
  3. SOMAVERT [Suspect]
     Active Substance: PEGVISOMANT
     Dosage: 5X/WEEK
     Route: 058
  4. DESMOPRESSIN [Concomitant]
     Active Substance: DESMOPRESSIN
     Dosage: 1 DF
  5. DOSTINEX [Concomitant]
     Active Substance: CABERGOLINE
     Dosage: 1 DF DOSAGE FORM, EVERY 2 WEEKS (UNK DOSE)
  6. SANDOSTATIN LAR DEPOT [Concomitant]
     Active Substance: OCTREOTIDE ACETATE
     Dosage: 1 DF
  7. TESTOSTERONE [Concomitant]
     Active Substance: TESTOSTERONE
     Dosage: 1 DF

REACTIONS (3)
  - Shoulder operation [Unknown]
  - Therapeutic product effect incomplete [Not Recovered/Not Resolved]
  - Off label use [Unknown]

NARRATIVE: CASE EVENT DATE: 20240601
